FAERS Safety Report 10540178 (Version 1)
Quarter: 2014Q4

REPORT INFORMATION
  Report Type: Spontaneous
  Country: SE (occurrence: SE)
  Receive Date: 20141024
  Receipt Date: 20141024
  Transmission Date: 20150529
  Serious: Yes (Hospitalization, Other)
  Sender: FDA-Public Use
  Company Number: SE-ASTRAZENECA-2014SE78443

PATIENT
  Age: 86 Year
  Sex: Female

DRUGS (8)
  1. LEVAXIN [Concomitant]
     Active Substance: LEVOTHYROXINE SODIUM
  2. CRESTOR [Suspect]
     Active Substance: ROSUVASTATIN CALCIUM
     Route: 048
     Dates: end: 20140921
  3. TROMBYL [Concomitant]
     Active Substance: ASPIRIN
  4. FOLACIN [Concomitant]
     Active Substance: FOLIC ACID
  5. CORTISONE [Concomitant]
     Active Substance: CORTISONE\HYDROCORTISONE
  6. BEHEPAN [Concomitant]
     Active Substance: HYDROXOCOBALAMIN
  7. PANODIL [Concomitant]
     Active Substance: ACETAMINOPHEN
  8. IBUPROFEN. [Concomitant]
     Active Substance: IBUPROFEN

REACTIONS (9)
  - Oropharyngeal pain [Recovering/Resolving]
  - Condition aggravated [Recovering/Resolving]
  - Muscle tightness [Recovering/Resolving]
  - Balance disorder [Recovering/Resolving]
  - Memory impairment [Recovering/Resolving]
  - Aphasia [Recovering/Resolving]
  - Lip swelling [Recovering/Resolving]
  - Headache [Recovering/Resolving]
  - Dizziness [Recovering/Resolving]

NARRATIVE: CASE EVENT DATE: 20140917
